FAERS Safety Report 23912804 (Version 1)
Quarter: 2024Q2

REPORT INFORMATION
  Report Type: Spontaneous
  Country: US (occurrence: US)
  Receive Date: 20240529
  Receipt Date: 20240529
  Transmission Date: 20240716
  Serious: Yes (Hospitalization, Other)
  Sender: FDA-Public Use
  Company Number: US-NOVOPROD-1225480

PATIENT
  Sex: Female

DRUGS (1)
  1. OZEMPIC [Suspect]
     Active Substance: SEMAGLUTIDE
     Indication: Product used for unknown indication
     Dosage: 1 MG, QW
     Route: 058

REACTIONS (5)
  - Fall [Unknown]
  - Fibula fracture [Unknown]
  - Tibia fracture [Unknown]
  - Bladder cancer [Unknown]
  - Constipation [Unknown]

NARRATIVE: CASE EVENT DATE: 20240101
